FAERS Safety Report 9449013 (Version 3)
Quarter: 2014Q1

REPORT INFORMATION
  Report Type: Spontaneous
  Country: FR (occurrence: None)
  Receive Date: 20130806
  Receipt Date: 20140127
  Transmission Date: 20141002
  Serious: Yes (Hospitalization, Other)
  Sender: FDA-Public Use
  Company Number: 2013FR002191

PATIENT
  Age: 79 Year
  Sex: Female
  Weight: 55 kg

DRUGS (8)
  1. PONATINIB [Suspect]
     Indication: CHRONIC MYELOID LEUKAEMIA
     Route: 048
     Dates: start: 20110714
  2. LEVOTHYROX (LEVOTHYROXINE SODIUM) [Concomitant]
  3. PRAVASTATIN (PRAVASTATIN) [Concomitant]
  4. INIPOMP (PANTOPRAZOLE SODIUM SESQUIHYDRATE) [Concomitant]
  5. MOVICOL (MACROGOL, POTASSIU CHLORIDE, SODIUM BICARBONATE) [Concomitant]
  6. IMPORTAL (LACTITOL) [Concomitant]
  7. SOLUPRED (PREDNISOLONE METASULFOBENZOATE SODIUM) [Concomitant]
  8. LAMALINE (CAFFEINE, PAPAVER SOMNIFERUM LATEX, PARACETAMOL) [Concomitant]

REACTIONS (5)
  - Deep vein thrombosis [None]
  - Deep vein thrombosis [None]
  - Bundle branch block right [None]
  - Blood pH increased [None]
  - Haemoglobin decreased [None]
